FAERS Safety Report 8107456 (Version 3)
Quarter: 2012Q4

REPORT INFORMATION
  Report Type: 
  Country: US (occurrence: US)
  Receive Date: 20110825
  Receipt Date: 20121120
  Transmission Date: 20130627
  Serious: Yes (Hospitalization, Other)
  Sender: FDA-Public Use
  Company Number: US-ASTRAZENECA-2011SE49832

PATIENT
  Age: 35 Year
  Sex: Male

DRUGS (1)
  1. NEXIUM [Suspect]
     Route: 048
     Dates: start: 2010

REACTIONS (8)
  - Amyloidosis [Unknown]
  - Aphonia [Unknown]
  - Reflux laryngitis [Unknown]
  - Laryngitis [Unknown]
  - Dyspepsia [Unknown]
  - Gastrooesophageal reflux disease [Unknown]
  - Dysphonia [Unknown]
  - Drug dose omission [Unknown]
